FAERS Safety Report 11105815 (Version 1)
Quarter: 2015Q2

REPORT INFORMATION
  Report Type: Spontaneous
  Country: FR (occurrence: FR)
  Receive Date: 20150512
  Receipt Date: 20150512
  Transmission Date: 20150821
  Serious: Yes (Life-Threatening, Hospitalization, Other)
  Sender: FDA-Public Use
  Company Number: FR-ELI_LILLY_AND_COMPANY-FR201505000815

PATIENT
  Age: 33 Year
  Sex: Female
  Weight: 120 kg

DRUGS (7)
  1. XEROQUEL [Suspect]
     Active Substance: QUETIAPINE FUMARATE
     Indication: SUICIDE ATTEMPT
     Dosage: 1 DF, OTHER
     Route: 065
     Dates: start: 20140519, end: 20140519
  2. LYSANXIA [Suspect]
     Active Substance: PRAZEPAM
     Indication: SUICIDE ATTEMPT
     Dosage: 10 MG, OTHER
     Route: 048
     Dates: start: 20140519, end: 20140519
  3. BROMAZEPAM [Suspect]
     Active Substance: BROMAZEPAM
     Indication: SUICIDE ATTEMPT
     Dosage: 1 DF, OTHER
     Route: 065
     Dates: start: 20140519, end: 20140519
  4. DIPIPERON [Suspect]
     Active Substance: PIPAMPERONE
     Indication: SUICIDE ATTEMPT
     Dosage: 1 DF, OTHER
     Route: 065
     Dates: start: 20140519, end: 20140519
  5. CYMBALTA [Suspect]
     Active Substance: DULOXETINE HYDROCHLORIDE
     Indication: SUICIDE ATTEMPT
     Dosage: 30 MG, OTHER
     Route: 065
     Dates: start: 20140519, end: 20140519
  6. NOCTAMIDE [Suspect]
     Active Substance: LORMETAZEPAM
     Indication: SUICIDE ATTEMPT
     Dosage: 1 DF, OTHER
     Route: 065
     Dates: start: 20140519, end: 20140519
  7. CYMBALTA [Suspect]
     Active Substance: DULOXETINE HYDROCHLORIDE
     Dosage: 60 MG, OTHER
     Route: 048
     Dates: start: 20140519, end: 20140519

REACTIONS (6)
  - Coma [Recovered/Resolved]
  - Respiratory distress [Recovered/Resolved]
  - Pneumonia aspiration [Recovered/Resolved]
  - Diarrhoea [Recovered/Resolved]
  - Suicide attempt [Unknown]
  - Toxicity to various agents [Recovered/Resolved]

NARRATIVE: CASE EVENT DATE: 20140519
